FAERS Safety Report 11892217 (Version 4)
Quarter: 2016Q1

REPORT INFORMATION
  Report Type: Report from Study
  Country: US (occurrence: US)
  Receive Date: 20160106
  Receipt Date: 20160216
  Transmission Date: 20160526
  Serious: Yes (Hospitalization, Disabling, Other)
  Sender: FDA-Public Use
  Company Number: US-BAYER-2015-489490

PATIENT
  Age: 78 Year
  Sex: Female

DRUGS (1)
  1. NEXAVAR [Suspect]
     Active Substance: SORAFENIB
     Indication: HEPATOCELLULAR CARCINOMA
     Dosage: 200 MG, BID
     Route: 048
     Dates: start: 20151208, end: 20151228

REACTIONS (19)
  - Fall [None]
  - Hepatocellular carcinoma [None]
  - Dry skin [None]
  - Abdominal pain [None]
  - Blood pressure increased [None]
  - Constipation [None]
  - Nausea [Not Recovered/Not Resolved]
  - Skin exfoliation [None]
  - Abdominal distension [None]
  - Urinary tract infection [None]
  - Blood pressure increased [None]
  - Fatigue [None]
  - Erythema [None]
  - Asthenia [None]
  - Abdominal pain [None]
  - Decreased appetite [None]
  - Asthenia [None]
  - Pyrexia [None]
  - Asthenia [None]

NARRATIVE: CASE EVENT DATE: 2015
